FAERS Safety Report 18970352 (Version 39)
Quarter: 2025Q2

REPORT INFORMATION
  Report Type: Spontaneous
  Country: CA (occurrence: CA)
  Receive Date: 20210305
  Receipt Date: 20250619
  Transmission Date: 20250717
  Serious: Yes (Hospitalization, Other)
  Sender: CELLTRION
  Company Number: CA-CELLTRION INC.-2020CA024894

PATIENT

DRUGS (48)
  1. INFLECTRA [Suspect]
     Active Substance: INFLIXIMAB-DYYB
     Indication: Crohn^s disease
     Route: 042
     Dates: start: 20200728, end: 20200728
  2. INFLECTRA [Suspect]
     Active Substance: INFLIXIMAB-DYYB
     Indication: Rheumatoid arthritis
     Route: 042
     Dates: start: 20200811
  3. INFLECTRA [Suspect]
     Active Substance: INFLIXIMAB-DYYB
     Route: 042
     Dates: start: 20200910
  4. INFLECTRA [Suspect]
     Active Substance: INFLIXIMAB-DYYB
     Route: 042
     Dates: start: 20201104
  5. INFLECTRA [Suspect]
     Active Substance: INFLIXIMAB-DYYB
     Route: 042
     Dates: start: 20201229
  6. INFLECTRA [Suspect]
     Active Substance: INFLIXIMAB-DYYB
     Route: 042
     Dates: start: 20210223
  7. INFLECTRA [Suspect]
     Active Substance: INFLIXIMAB-DYYB
     Route: 042
     Dates: start: 20210223
  8. INFLECTRA [Suspect]
     Active Substance: INFLIXIMAB-DYYB
     Route: 042
     Dates: start: 20210427
  9. INFLECTRA [Suspect]
     Active Substance: INFLIXIMAB-DYYB
     Route: 042
     Dates: start: 20210622
  10. INFLECTRA [Suspect]
     Active Substance: INFLIXIMAB-DYYB
     Route: 042
     Dates: start: 20210817
  11. INFLECTRA [Suspect]
     Active Substance: INFLIXIMAB-DYYB
     Route: 042
     Dates: start: 20211012
  12. INFLECTRA [Suspect]
     Active Substance: INFLIXIMAB-DYYB
     Route: 042
     Dates: start: 20211227
  13. INFLECTRA [Suspect]
     Active Substance: INFLIXIMAB-DYYB
     Route: 042
     Dates: start: 20220308
  14. INFLECTRA [Suspect]
     Active Substance: INFLIXIMAB-DYYB
     Route: 042
     Dates: start: 20220503
  15. INFLECTRA [Suspect]
     Active Substance: INFLIXIMAB-DYYB
     Route: 041
     Dates: start: 20220714
  16. INFLECTRA [Suspect]
     Active Substance: INFLIXIMAB-DYYB
     Route: 041
     Dates: start: 20220910
  17. INFLECTRA [Suspect]
     Active Substance: INFLIXIMAB-DYYB
     Route: 041
     Dates: start: 20221107
  18. INFLECTRA [Suspect]
     Active Substance: INFLIXIMAB-DYYB
     Route: 041
     Dates: start: 20230106
  19. INFLECTRA [Suspect]
     Active Substance: INFLIXIMAB-DYYB
     Route: 041
     Dates: start: 20230303
  20. INFLECTRA [Suspect]
     Active Substance: INFLIXIMAB-DYYB
     Route: 041
     Dates: start: 20230509
  21. INFLECTRA [Suspect]
     Active Substance: INFLIXIMAB-DYYB
     Route: 041
     Dates: start: 20230628
  22. INFLECTRA [Suspect]
     Active Substance: INFLIXIMAB-DYYB
     Route: 041
     Dates: start: 20230821
  23. INFLECTRA [Suspect]
     Active Substance: INFLIXIMAB-DYYB
     Route: 041
     Dates: start: 20231016
  24. INFLECTRA [Suspect]
     Active Substance: INFLIXIMAB-DYYB
     Route: 041
     Dates: start: 20231211
  25. INFLECTRA [Suspect]
     Active Substance: INFLIXIMAB-DYYB
     Route: 041
     Dates: start: 20240205
  26. INFLECTRA [Suspect]
     Active Substance: INFLIXIMAB-DYYB
     Route: 041
     Dates: start: 20240402
  27. INFLECTRA [Suspect]
     Active Substance: INFLIXIMAB-DYYB
     Route: 041
     Dates: start: 20240529
  28. INFLECTRA [Suspect]
     Active Substance: INFLIXIMAB-DYYB
     Route: 041
     Dates: start: 20240725
  29. INFLECTRA [Suspect]
     Active Substance: INFLIXIMAB-DYYB
     Route: 041
     Dates: start: 20240917
  30. INFLECTRA [Suspect]
     Active Substance: INFLIXIMAB-DYYB
     Route: 042
     Dates: start: 20241114
  31. INFLECTRA [Suspect]
     Active Substance: INFLIXIMAB-DYYB
     Route: 042
     Dates: start: 20241223
  32. INFLECTRA [Suspect]
     Active Substance: INFLIXIMAB-DYYB
     Route: 042
     Dates: start: 20250204
  33. INFLECTRA [Suspect]
     Active Substance: INFLIXIMAB-DYYB
     Route: 042
     Dates: start: 20250317
  34. INFLECTRA [Suspect]
     Active Substance: INFLIXIMAB-DYYB
     Route: 042
     Dates: start: 20250430
  35. INFLECTRA [Suspect]
     Active Substance: INFLIXIMAB-DYYB
     Route: 042
     Dates: start: 20250610
  36. ACETAMINOPHEN [Concomitant]
     Active Substance: ACETAMINOPHEN
     Indication: Premedication
     Dates: start: 20201104, end: 20201104
  37. BUDESONIDE [Concomitant]
     Active Substance: BUDESONIDE
     Indication: Condition aggravated
     Route: 065
     Dates: start: 20200922
  38. BUDESONIDE [Concomitant]
     Active Substance: BUDESONIDE
     Indication: Abdominal discomfort
  39. CIPROFLOXACIN [Concomitant]
     Active Substance: CIPROFLOXACIN
  40. CORTISONE [Concomitant]
     Active Substance: CORTISONE
     Route: 065
  41. DIPHENHYDRAMINE [Concomitant]
     Active Substance: DIPHENHYDRAMINE
     Indication: Premedication
     Dates: start: 20200811, end: 20200811
  42. HYDROCORTISONE [Concomitant]
     Active Substance: HYDROCORTISONE
     Indication: Premedication
     Dates: start: 20200811, end: 20200811
  43. HYDROCORTISONE [Concomitant]
     Active Substance: HYDROCORTISONE
     Dates: start: 20201104, end: 20201104
  44. HYDROCORTISONE [Concomitant]
     Active Substance: HYDROCORTISONE
     Dates: start: 20250610, end: 20250610
  45. METHOTREXATE [Concomitant]
     Active Substance: METHOTREXATE
     Route: 058
  46. SULFASALAZINE [Concomitant]
     Active Substance: SULFASALAZINE
  47. UPADACITINIB [Concomitant]
     Active Substance: UPADACITINIB
     Dates: start: 202505
  48. BENADRYL [Concomitant]
     Active Substance: DIPHENHYDRAMINE HYDROCHLORIDE
     Indication: Premedication
     Dates: start: 20250610, end: 20250610

REACTIONS (39)
  - Fall [Recovering/Resolving]
  - Pulmonary fibrosis [Unknown]
  - Faecaloma [Unknown]
  - Staphylococcal infection [Unknown]
  - Uveitis [Recovered/Resolved]
  - Drug ineffective [Unknown]
  - Therapeutic product effect incomplete [Unknown]
  - Therapeutic response shortened [Unknown]
  - Condition aggravated [Not Recovered/Not Resolved]
  - Heart rate decreased [Unknown]
  - Abdominal pain upper [Not Recovered/Not Resolved]
  - Dizziness [Recovered/Resolved]
  - Drug intolerance [Unknown]
  - Insomnia [Unknown]
  - Mood altered [Unknown]
  - Weight fluctuation [Unknown]
  - Infusion site hypoaesthesia [Unknown]
  - Nausea [Recovered/Resolved]
  - Constipation [Unknown]
  - Sleep disorder due to a general medical condition [Unknown]
  - Rash [Not Recovered/Not Resolved]
  - Joint swelling [Unknown]
  - Bursitis [Unknown]
  - Arthralgia [Recovered/Resolved]
  - Cholelithiasis [Unknown]
  - Functional gastrointestinal disorder [Unknown]
  - Intervertebral disc space narrowing [Unknown]
  - Rash papular [Not Recovered/Not Resolved]
  - Hypotension [Not Recovered/Not Resolved]
  - Venous occlusion [Unknown]
  - COVID-19 [Unknown]
  - Weight decreased [Unknown]
  - Bacterial infection [Not Recovered/Not Resolved]
  - Eye pruritus [Unknown]
  - Anal pruritus [Unknown]
  - Aphthous ulcer [Recovered/Resolved]
  - Fistula [Recovered/Resolved]
  - Inappropriate schedule of product administration [Unknown]
  - Off label use [Unknown]

NARRATIVE: CASE EVENT DATE: 20200101
